FAERS Safety Report 16288351 (Version 5)
Quarter: 2019Q2

REPORT INFORMATION
  Report Type: Spontaneous
  Country: US (occurrence: US)
  Receive Date: 20190508
  Receipt Date: 20190601
  Transmission Date: 20190711
  Serious: Yes (Hospitalization, Other)
  Sender: FDA-Public Use
  Company Number: US-UNITED THERAPEUTICS-UNT-2019-008014

PATIENT
  Age: 55 Year
  Sex: Female
  Weight: 78.5 kg

DRUGS (4)
  1. ELIQUIS [Concomitant]
     Active Substance: APIXABAN
     Indication: PRODUCT USED FOR UNKNOWN INDICATION
     Dosage: UNK
     Route: 065
  2. REMODULIN [Suspect]
     Active Substance: TREPROSTINIL
     Indication: PULMONARY ARTERIAL HYPERTENSION
     Dosage: 0.014 ?G/KG, CONTINUING
     Route: 041
     Dates: start: 20190429
  3. REMODULIN [Suspect]
     Active Substance: TREPROSTINIL
     Dosage: 0.016 ?G/KG, CONTINUING
     Route: 041
  4. LETAIRIS [Concomitant]
     Active Substance: AMBRISENTAN
     Indication: PRODUCT USED FOR UNKNOWN INDICATION
     Dosage: UNK
     Route: 065

REACTIONS (19)
  - Headache [Not Recovered/Not Resolved]
  - Myalgia [Unknown]
  - Swelling [Unknown]
  - Decreased appetite [Unknown]
  - Pain [Unknown]
  - Body temperature increased [Unknown]
  - Nausea [Unknown]
  - Jugular vein thrombosis [Unknown]
  - Lacrimation increased [Unknown]
  - Dry mouth [Unknown]
  - Diarrhoea [Unknown]
  - Bone pain [Unknown]
  - Pain in jaw [Not Recovered/Not Resolved]
  - Fall [Recovered/Resolved]
  - Pneumonia [Unknown]
  - Product contamination [Unknown]
  - Ear infection [Unknown]
  - Dizziness [Unknown]
  - Product administration interrupted [Unknown]

NARRATIVE: CASE EVENT DATE: 20190519
